FAERS Safety Report 7732752-7 (Version None)
Quarter: 2011Q3

REPORT INFORMATION
  Report Type: 
  Country: None (occurrence: None)
  Receive Date: 20110901
  Receipt Date: 20100927
  Transmission Date: 20111222
  Serious: Yes (Hospitalization)
  Sender: FDA-Public Use
  Company Number: GAM-276-10-US

PATIENT
  Age: 69 Year
  Sex: Female

DRUGS (9)
  1. ULTRAM [Concomitant]
  2. PEPCID COMPLETE (FAMOTIDINE, CALCIUM AND MAGNESIUM) [Concomitant]
  3. OCTAGAM [Suspect]
  4. ZOCOR [Concomitant]
  5. PLAVIX [Concomitant]
  6. BACLOFEN [Concomitant]
  7. OCTAGAM [Suspect]
     Indication: MULTIPLE SCLEROSIS
     Dosage: 25 GM/GAY, IV FOR 5 DAYS
     Route: 042
     Dates: start: 20100726, end: 20100728
  8. NEURONTIN [Concomitant]
  9. DILTIAZEM [Concomitant]

REACTIONS (1)
  - MYOCARDIAL INFARCTION [None]
